FAERS Safety Report 9241942 (Version 2)
Quarter: 2013Q3

REPORT INFORMATION
  Report Type: Report from Study
  Country: US (occurrence: US)
  Receive Date: 20130419
  Receipt Date: 20130802
  Transmission Date: 20140515
  Serious: Yes (Other)
  Sender: FDA-Public Use
  Company Number: US-ROCHE-1211294

PATIENT
  Sex: Female

DRUGS (9)
  1. RITUXIMAB [Suspect]
     Indication: LYMPHOMA
     Route: 065
  2. DOXORUBICIN HYDROCHLORIDE [Suspect]
     Indication: LYMPHOMA
     Route: 065
  3. BLEOMYCIN SULFATE [Suspect]
     Indication: LYMPHOMA
     Route: 065
  4. VINBLASTINE SULFATE [Suspect]
     Indication: LYMPHOMA
     Route: 065
  5. DACARBAZINE [Suspect]
     Indication: LYMPHOMA
     Route: 065
  6. GEMCITABINE HYDROCHLORIDE [Suspect]
     Indication: LYMPHOMA
     Route: 065
  7. CYCLOPHOSPHAMIDE [Suspect]
     Indication: LYMPHOMA
     Route: 065
  8. VINCRISTINE [Suspect]
     Indication: LYMPHOMA
     Route: 065
  9. PREDNISONE [Suspect]
     Indication: LYMPHOMA
     Route: 065

REACTIONS (2)
  - Abortion spontaneous [Unknown]
  - Exposure during pregnancy [Unknown]
